FAERS Safety Report 22093323 (Version 1)
Quarter: 2023Q1

REPORT INFORMATION
  Report Type: Report from Study
  Country: US (occurrence: US)
  Receive Date: 20230314
  Receipt Date: 20230314
  Transmission Date: 20230418
  Serious: Yes (Other)
  Sender: FDA-Public Use
  Company Number: US-JAZZ PHARMACEUTICALS-2023-US-005755

PATIENT
  Sex: Male

DRUGS (11)
  1. XYREM [Suspect]
     Active Substance: SODIUM OXYBATE
     Indication: Narcolepsy
  2. XYREM [Suspect]
     Active Substance: SODIUM OXYBATE
     Indication: Cataplexy
  3. XYREM [Suspect]
     Active Substance: SODIUM OXYBATE
     Indication: Somnolence
  4. CRESTOR [Concomitant]
     Active Substance: ROSUVASTATIN CALCIUM
     Dosage: 0000
     Dates: start: 20140219
  5. CITALOPRAM [Concomitant]
     Active Substance: CITALOPRAM HYDROBROMIDE
     Dosage: 0010
     Dates: start: 20140219
  6. METFORMIN HYDROCHLORIDE [Concomitant]
     Active Substance: METFORMIN HYDROCHLORIDE
     Dosage: 0010
     Dates: start: 20140219
  7. LEVOTHYROXINE [Concomitant]
     Active Substance: LEVOTHYROXINE
     Dosage: 0010
     Dates: start: 20140219
  8. MOBIC [Concomitant]
     Active Substance: MELOXICAM
     Dosage: 0010
     Dates: start: 20140219
  9. DILTIAZEM [Concomitant]
     Active Substance: DILTIAZEM
     Dosage: 0010
     Dates: start: 20140219
  10. LOPID [Concomitant]
     Active Substance: GEMFIBROZIL
     Dosage: 0010
     Dates: start: 20140219
  11. CETIRIZINE HCL [Concomitant]
     Active Substance: CETIRIZINE HYDROCHLORIDE
     Dosage: 0000
     Dates: start: 20140423

REACTIONS (2)
  - Neuropathy peripheral [Unknown]
  - Product administration interrupted [Unknown]
